FAERS Safety Report 8133646-8 (Version None)
Quarter: 2012Q1

REPORT INFORMATION
  Report Type: 
  Country: None (occurrence: None)
  Receive Date: 20120213
  Receipt Date: 20120131
  Transmission Date: 20120608
  Serious: Yes (Disabling, Other)
  Sender: FDA-Public Use
  Company Number: US-ROCHE-798474

PATIENT
  Sex: Male

DRUGS (5)
  1. POVIDONE IODINE [Concomitant]
     Dosage: 5 PERCENT
  2. OFLOXACIN [Concomitant]
     Dosage: 0.3 PERCENT
     Route: 047
  3. AVASTIN [Suspect]
     Indication: AGE-RELATED MACULAR DEGENERATION
     Dosage: FREQUENCY : 4-6 WEEKS
     Route: 050
     Dates: start: 20110812, end: 20110815
  4. PROPARACAINE HCL [Concomitant]
     Route: 047
  5. LIDOCAINE [Concomitant]
     Dosage: REPORTED AS : 1 PERCENT W/EPI

REACTIONS (5)
  - EYE PAIN [None]
  - VISUAL ACUITY REDUCED [None]
  - EYE INFLAMMATION [None]
  - BLINDNESS [None]
  - PRODUCT QUALITY ISSUE [None]
